FAERS Safety Report 8564677-1 (Version None)
Quarter: 2012Q3

REPORT INFORMATION
  Report Type: 
  Country: None (occurrence: None)
  Receive Date: 20120803
  Receipt Date: 19840410
  Transmission Date: 20120928
  Serious: No
  Sender: FDA-Public Use
  Company Number: US-009507513-82110239

PATIENT

DRUGS (1)
  1. CLINORIL [Suspect]
     Indication: ARTHRITIS
     Dosage: 400 MG, BID
     Route: 048
     Dates: start: 19810722, end: 19810914

REACTIONS (4)
  - DYSPNOEA [None]
  - DYSPEPSIA [None]
  - CHEST PAIN [None]
  - DECREASED APPETITE [None]
